FAERS Safety Report 8821262 (Version 3)
Quarter: 2020Q3

REPORT INFORMATION
  Report Type: Report from Study
  Country: DE (occurrence: DE)
  Receive Date: 20121002
  Receipt Date: 20150122
  Transmission Date: 20201104
  Serious: Yes (Hospitalization)
  Sender: FDA-Public Use
  Company Number: DE-ROCHE-1097722

PATIENT
  Age: 49 Year
  Sex: Female
  Weight: 69 kg

DRUGS (12)
  1. BEVACIZUMAB. [Suspect]
     Active Substance: BEVACIZUMAB
     Indication: BREAST CANCER METASTATIC
     Route: 042
     Dates: start: 20120305, end: 20120305
  2. TAXOL [Suspect]
     Active Substance: PACLITAXEL
     Route: 042
     Dates: start: 20120418
  3. TAXOL [Suspect]
     Active Substance: PACLITAXEL
     Route: 042
     Dates: start: 20120502
  4. TAXOL [Suspect]
     Active Substance: PACLITAXEL
     Route: 042
     Dates: start: 20120327
  5. TAXOL [Suspect]
     Active Substance: PACLITAXEL
     Route: 042
     Dates: start: 20120411
  6. TAXOL [Suspect]
     Active Substance: PACLITAXEL
     Route: 042
     Dates: start: 20120320
  7. TAXOL [Suspect]
     Active Substance: PACLITAXEL
     Route: 042
     Dates: start: 20120403
  8. BEVACIZUMAB. [Suspect]
     Active Substance: BEVACIZUMAB
     Route: 042
     Dates: start: 20120820, end: 20120820
  9. TAXOL [Suspect]
     Active Substance: PACLITAXEL
     Indication: BREAST CANCER METASTATIC
     Route: 042
     Dates: start: 20120305, end: 20120502
  10. IBANDRONIC ACID. [Suspect]
     Active Substance: IBANDRONIC ACID
     Indication: METASTASES TO BONE
     Route: 042
     Dates: start: 20110825
  11. TAXOL [Suspect]
     Active Substance: PACLITAXEL
     Route: 042
     Dates: start: 20120312
  12. TAXOL [Suspect]
     Active Substance: PACLITAXEL
     Route: 042
     Dates: start: 20120425

REACTIONS (1)
  - Tooth extraction [Recovered/Resolved with Sequelae]

NARRATIVE: CASE EVENT DATE: 20120912
